FAERS Safety Report 21066160 (Version 1)
Quarter: 2022Q3

REPORT INFORMATION
  Report Type: Spontaneous
  Country: US (occurrence: US)
  Receive Date: 20220711
  Receipt Date: 20220711
  Transmission Date: 20221026
  Serious: No
  Sender: FDA-Public Use
  Company Number: US-INTRA-CELLULAR THERAPIES, INC.-2022ICT00586

PATIENT
  Sex: Female

DRUGS (2)
  1. CAPLYTA [Suspect]
     Active Substance: LUMATEPERONE
     Dosage: 42 MG, 1X/DAY
     Route: 048
  2. CLOZARIL [Concomitant]
     Active Substance: CLOZAPINE
     Dosage: UNK

REACTIONS (4)
  - Feeling hot [Unknown]
  - Discomfort [Unknown]
  - Feeling abnormal [Unknown]
  - Temperature regulation disorder [Unknown]
